FAERS Safety Report 7281510-9 (Version None)
Quarter: 2011Q1

REPORT INFORMATION
  Report Type: 
  Country: None (occurrence: None)
  Receive Date: 20110208
  Receipt Date: 20110202
  Transmission Date: 20110831
  Serious: Yes (Other)
  Sender: FDA-Public Use
  Company Number: CH-PFIZER INC-CH-WYE-G05718310

PATIENT
  Age: 33 Year
  Sex: Female
  Weight: 80 kg

DRUGS (4)
  1. MAGNESIUM [Concomitant]
     Indication: CONSTIPATION
     Dosage: 12 MMOL, 1X/DAY
     Route: 048
     Dates: start: 20100506
  2. ANDREAFOL [Concomitant]
     Indication: PROPHYLAXIS
     Dosage: 0.4 MG, 1X/DAY
     Route: 048
     Dates: start: 20100309, end: 20100325
  3. EFFEXOR [Suspect]
     Indication: DEPRESSION
     Dosage: 150 MG, 1X/DAY
     Route: 048
  4. ELEVIT PRONATAL [Concomitant]
     Indication: PREGNANCY
     Dosage: UNK
     Route: 048
     Dates: start: 20100325

REACTIONS (4)
  - VAGINITIS BACTERIAL [None]
  - CONSTIPATION [None]
  - URINARY TRACT INFECTION [None]
  - PRE-ECLAMPSIA [None]
